FAERS Safety Report 5863880-9 (Version None)
Quarter: 2008Q3

REPORT INFORMATION
  Report Type: 
  Country: None (occurrence: None)
  Receive Date: 20080827
  Receipt Date: 20080811
  Transmission Date: 20090109
  Serious: Yes (Life-Threatening, Other)
  Sender: FDA-Public Use
  Company Number: PAR_02307_2008

PATIENT
  Age: 53 Year
  Sex: Female

DRUGS (5)
  1. ALLOPURINOL [Suspect]
     Indication: TUMOUR LYSIS SYNDROME
     Dosage: (DF)
  2. ANTIBIOTICS (ANTIBIOTICS) [Suspect]
     Indication: BRONCHOPULMONARY ASPERGILLOSIS
     Dosage: (DF)
  3. ANTIBIOTICS (ANTIBIOTICS) [Suspect]
     Indication: STAPHYLOCOCCAL SEPSIS
     Dosage: (DF)
  4. ANTIFUNGALS (ANTIFUNGAL AGENTS) [Suspect]
     Indication: BRONCHOPULMONARY ASPERGILLOSIS
     Dosage: (DF)
  5. ANTIFUNGALS (ANTIFUNGAL AGENTS) [Suspect]
     Indication: STAPHYLOCOCCAL SEPSIS
     Dosage: (DF)

REACTIONS (9)
  - BRONCHOPULMONARY ASPERGILLOSIS [None]
  - DRUG RASH WITH EOSINOPHILIA AND SYSTEMIC SYMPTOMS [None]
  - HYPOGAMMAGLOBULINAEMIA [None]
  - IMMUNOSUPPRESSION [None]
  - LEUKOCYTOSIS [None]
  - LYMPHADENOPATHY [None]
  - RENAL IMPAIRMENT [None]
  - STAPHYLOCOCCAL SEPSIS [None]
  - SYSTEMIC LUPUS ERYTHEMATOSUS RASH [None]
